FAERS Safety Report 12624324 (Version 1)
Quarter: 2016Q3

REPORT INFORMATION
  Report Type: Spontaneous
  Country: US (occurrence: US)
  Receive Date: 20160805
  Receipt Date: 20160805
  Transmission Date: 20161109
  Serious: No
  Sender: FDA-Public Use
  Company Number: US-TEVA-674809USA

PATIENT
  Sex: Female

DRUGS (2)
  1. COPAXONE [Suspect]
     Active Substance: GLATIRAMER ACETATE
  2. COPAXONE [Suspect]
     Active Substance: GLATIRAMER ACETATE

REACTIONS (7)
  - Therapy change [Unknown]
  - Flushing [Unknown]
  - Injection site reaction [Unknown]
  - Dyspnoea [Unknown]
  - Tremor [Unknown]
  - Injection site mass [Unknown]
  - Chest discomfort [Unknown]
